FAERS Safety Report 24114366 (Version 1)
Quarter: 2024Q3

REPORT INFORMATION
  Report Type: Spontaneous
  Country: GB (occurrence: GB)
  Receive Date: 20240720
  Receipt Date: 20240720
  Transmission Date: 20241016
  Serious: Yes (Other)
  Sender: RANBAXY
  Company Number: GB-MHRA-MED-202405051644346530-QGMWK

PATIENT
  Sex: Male
  Weight: 89 kg

DRUGS (4)
  1. SERTRALINE [Interacting]
     Active Substance: SERTRALINE HYDROCHLORIDE
     Indication: Adverse drug reaction
     Dosage: 250 MILLIGRAM, DAILY
     Route: 065
  2. AMOXICILLIN [Interacting]
     Active Substance: AMOXICILLIN
     Indication: Adverse drug reaction
     Dosage: UNK
     Route: 065
  3. CLOPIDOGREL [Interacting]
     Active Substance: CLOPIDOGREL BISULFATE
     Indication: Product used for unknown indication
     Dosage: UNK
     Route: 065
  4. SIMVASTATIN [Interacting]
     Active Substance: SIMVASTATIN
     Indication: Product used for unknown indication
     Dosage: UNK
     Route: 065

REACTIONS (1)
  - Drug interaction [Recovered/Resolved]
